FAERS Safety Report 8455920-8 (Version None)
Quarter: 2012Q2

REPORT INFORMATION
  Report Type: 
  Country: None (occurrence: None)
  Receive Date: 20120614
  Receipt Date: 20120607
  Transmission Date: 20120825
  Serious: Yes (Other)
  Sender: FDA-Public Use
  Company Number: DSA_57503_2012

PATIENT
  Sex: Female

DRUGS (1)
  1. XENAZINE [Suspect]
     Indication: HUNTINGTON'S DISEASE
     Dosage: (12.5 MG QD ORAL) ; (12.5 MG (1 TAB EACH MORNING AND 1 TAB AT 2:00 PM) ORAL)
     Route: 048
     Dates: start: 20120519, end: 20120101

REACTIONS (6)
  - COGNITIVE DISORDER [None]
  - DEPRESSION [None]
  - CONFUSIONAL STATE [None]
  - KIDNEY INFECTION [None]
  - ABDOMINAL PAIN LOWER [None]
  - ABNORMAL BEHAVIOUR [None]
